FAERS Safety Report 5450487-0 (Version None)
Quarter: 2007Q3

REPORT INFORMATION
  Report Type: 
  Country: None (occurrence: None)
  Receive Date: 20070912
  Receipt Date: 20070907
  Transmission Date: 20080115
  Serious: Yes (Disabling)
  Sender: FDA-Public Use
  Company Number: GB-BOEHRINGER INGELHEIM PHARMACEUTICALS, INC.-2007-UK-02579UK

PATIENT
  Age: 67 Year
  Sex: Female
  Weight: 82 kg

DRUGS (17)
  1. DIPYRIDAMOLE [Suspect]
     Indication: PROPHYLAXIS
     Route: 048
     Dates: start: 20070219
  2. ADCAL-D3 [Concomitant]
     Route: 048
  3. ADIZEM [Concomitant]
  4. ASPIRIN [Concomitant]
  5. CO-CODAMOL [Concomitant]
  6. EFFERCITRATE [Concomitant]
  7. FUROSEMIDE [Concomitant]
  8. GLYCERYL TRINITRATE [Concomitant]
     Dosage: AS NECESSARY
  9. HYOSCINE HBR HYT [Concomitant]
  10. ISOSORBIDE MONONITRATE [Concomitant]
  11. PERINDOPRIL ERBUMINE [Concomitant]
  12. RABEPRAZOLE SODIUM [Concomitant]
  13. RISEDRONATE SODIUM [Concomitant]
     Dosage: 35MG A WEEK
  14. SIMVASTATIN [Concomitant]
  15. TOLTERODINE TARTRATE [Concomitant]
  16. TOPIRAMATE [Concomitant]
  17. SPEEDICATH [Concomitant]

REACTIONS (6)
  - ASTHENIA [None]
  - FAECAL INCONTINENCE [None]
  - LETHARGY [None]
  - NAUSEA [None]
  - PARAESTHESIA [None]
  - VISUAL DISTURBANCE [None]
